FAERS Safety Report 7125777-6 (Version None)
Quarter: 2010Q4

REPORT INFORMATION
  Report Type: 
  Country: None (occurrence: None)
  Receive Date: 20101129
  Receipt Date: 20101125
  Transmission Date: 20110411
  Serious: Yes (Hospitalization)
  Sender: FDA-Public Use
  Company Number: B0685841A

PATIENT
  Age: 59 Year
  Sex: Male

DRUGS (1)
  1. VENTOLIN [Suspect]
     Route: 055
     Dates: start: 20100329

REACTIONS (1)
  - HYPOKALAEMIA [None]
